FAERS Safety Report 8389602-8 (Version None)
Quarter: 2012Q2

REPORT INFORMATION
  Report Type: 
  Country: None (occurrence: None)
  Receive Date: 20120528
  Receipt Date: 20120523
  Transmission Date: 20120825
  Serious: Yes (Death, Hospitalization, Other)
  Sender: FDA-Public Use
  Company Number: JP-ROCHE-1036534

PATIENT
  Sex: Male
  Weight: 52 kg

DRUGS (9)
  1. PREDNISOLONE [Suspect]
     Indication: ACROMEGALY
     Route: 048
     Dates: start: 20120106
  2. LITHIUM CARBONATE [Suspect]
     Indication: MANIA
     Route: 048
     Dates: start: 20110517, end: 20120106
  3. VOLTAREN [Concomitant]
     Indication: PYREXIA
     Route: 054
     Dates: start: 20120106, end: 20120107
  4. HALOPERIDOL [Suspect]
     Indication: SCHIZOPHRENIA
     Route: 048
     Dates: start: 20120106
  5. VOLTAREN [Concomitant]
     Route: 054
     Dates: start: 20120108
  6. LEVOTHYROXINE SODIUM [Concomitant]
     Indication: HYPOTHYROIDISM
     Route: 048
     Dates: start: 20120106
  7. PURSENNID [Concomitant]
     Indication: CONSTIPATION
     Route: 048
     Dates: start: 20060201, end: 20120106
  8. AKINETON [Suspect]
     Indication: PARKINSONISM
     Route: 048
     Dates: start: 20120106
  9. TAMIFLU [Suspect]
     Indication: INFLUENZA
     Route: 048
     Dates: start: 20120106, end: 20120107

REACTIONS (8)
  - SHOCK [None]
  - LOSS OF CONSCIOUSNESS [None]
  - RASH [None]
  - PNEUMONIA [None]
  - SEPSIS [None]
  - RHABDOMYOLYSIS [None]
  - RESPIRATORY ARREST [None]
  - CEREBRAL INFARCTION [None]
